FAERS Safety Report 25872320 (Version 1)
Quarter: 2025Q4

REPORT INFORMATION
  Report Type: Spontaneous
  Country: BR (occurrence: BR)
  Receive Date: 20251002
  Receipt Date: 20251002
  Transmission Date: 20260117
  Serious: Yes (Hospitalization, Other)
  Sender: CHEPLAPHARM
  Company Number: BR-CHEPLA-2025011424

PATIENT
  Sex: Male
  Weight: 126 kg

DRUGS (9)
  1. CLONAZEPAM [Suspect]
     Active Substance: CLONAZEPAM
     Indication: Anxiety
     Dosage: DAILY DOSE: 20 DROP
     Dates: start: 2012, end: 20250909
  2. CLONAZEPAM [Suspect]
     Active Substance: CLONAZEPAM
     Indication: Panic disorder
     Dosage: DAILY DOSE: 20 DROP
     Dates: start: 2012, end: 20250909
  3. CLONAZEPAM [Suspect]
     Active Substance: CLONAZEPAM
     Indication: Anxiety
     Dosage: WHEN NECESSARY DUE TO PANIC ATTACKS, HE TAKES IT MORE THAN ONCE A DAY
     Dates: start: 2012, end: 20250909
  4. CLONAZEPAM [Suspect]
     Active Substance: CLONAZEPAM
     Indication: Panic disorder
     Dosage: WHEN NECESSARY DUE TO PANIC ATTACKS, HE TAKES IT MORE THAN ONCE A DAY
     Dates: start: 2012, end: 20250909
  5. AMPLICTIL [Suspect]
     Active Substance: CHLORPROMAZINE HYDROCHLORIDE
     Indication: Headache
  6. AMPLICTIL [Suspect]
     Active Substance: CHLORPROMAZINE HYDROCHLORIDE
     Indication: Nausea
  7. LEVOMEPROMAZINE [Suspect]
     Active Substance: LEVOMEPROMAZINE
     Indication: Headache
  8. LEVOMEPROMAZINE [Suspect]
     Active Substance: LEVOMEPROMAZINE
     Indication: Nausea
  9. ANAFRANIL [Suspect]
     Active Substance: CLOMIPRAMINE HYDROCHLORIDE
     Indication: Depression
     Dosage: ONGOING; 2 TABLETS PER DAY?DAILY DOSE: 2 DOSAGE FORM
     Dates: start: 2012

REACTIONS (14)
  - Rebound effect [Recovered/Resolved]
  - Hypertension [Recovered/Resolved]
  - Blood loss anaemia [Unknown]
  - Diarrhoea haemorrhagic [Unknown]
  - Nervousness [Not Recovered/Not Resolved]
  - Autoimmune disorder [Not Recovered/Not Resolved]
  - Colitis [Not Recovered/Not Resolved]
  - Anxiety [Not Recovered/Not Resolved]
  - Headache [Recovered/Resolved]
  - Insomnia [Not Recovered/Not Resolved]
  - Nausea [Recovered/Resolved]
  - Aggression [Not Recovered/Not Resolved]
  - Therapy interrupted [Not Recovered/Not Resolved]
  - Product availability issue [Not Recovered/Not Resolved]

NARRATIVE: CASE EVENT DATE: 20200101
